FAERS Safety Report 11184524 (Version 1)
Quarter: 2015Q2

REPORT INFORMATION
  Report Type: Spontaneous
  Country: TW (occurrence: None)
  Receive Date: 20150610
  Receipt Date: 20150610
  Transmission Date: 20150821
  Serious: Yes (Life-Threatening, Hospitalization)
  Sender: FDA-Public Use
  Company Number: TW-2015VAL000373

PATIENT
  Age: 19 Year
  Sex: Male

DRUGS (1)
  1. BROMOCRIPTINE MESYLATE [Suspect]
     Active Substance: BROMOCRIPTINE MESYLATE
     Indication: PRODUCT USED FOR UNKNOWN INDICATION

REACTIONS (12)
  - Body temperature decreased [None]
  - Musculoskeletal stiffness [None]
  - Pulmonary oedema [None]
  - Pneumonia aspiration [None]
  - Somnolence [None]
  - Dysarthria [None]
  - PO2 decreased [None]
  - Night sweats [None]
  - Tremor [None]
  - Sputum increased [None]
  - Dysphagia [None]
  - Respiratory distress [None]
